FAERS Safety Report 23443878 (Version 1)
Quarter: 2024Q1

REPORT INFORMATION
  Report Type: Spontaneous
  Country: US (occurrence: US)
  Receive Date: 20240125
  Receipt Date: 20240125
  Transmission Date: 20240409
  Serious: Yes (Hospitalization)
  Sender: FDA-Public Use
  Company Number: US-HORIZON THERAPEUTICS-HZN-2024-000763

PATIENT

DRUGS (3)
  1. PREDNISONE [Suspect]
     Active Substance: PREDNISONE
     Indication: Colitis ulcerative
     Dosage: 20 MG, TAPER
     Route: 065
  2. PREDNISONE [Suspect]
     Active Substance: PREDNISONE
     Indication: Cytomegalovirus colitis
     Dosage: 40 MG, TAPER
     Route: 065
  3. MESALAMINE [Concomitant]
     Active Substance: MESALAMINE
     Indication: Colitis ulcerative
     Route: 048

REACTIONS (6)
  - Condition aggravated [Unknown]
  - Bowel movement irregularity [Unknown]
  - Arthralgia [Unknown]
  - Weight decreased [Unknown]
  - Drug ineffective [Unknown]
  - Anaemia [Unknown]
